FAERS Safety Report 24678889 (Version 5)
Quarter: 2025Q3

REPORT INFORMATION
  Report Type: Report from Study
  Country: US (occurrence: US)
  Receive Date: 20241129
  Receipt Date: 20250710
  Transmission Date: 20251021
  Serious: Yes (Hospitalization, Other)
  Sender: INSMED
  Company Number: US-INSMED, INC.-2024-04605-US

PATIENT

DRUGS (1)
  1. ARIKAYCE [Suspect]
     Active Substance: AMIKACIN
     Indication: Mycobacterium avium complex infection
     Dosage: 590 MILLIGRAM, QD
     Route: 055
     Dates: start: 20241105, end: 202411

REACTIONS (13)
  - Oxygen saturation decreased [Not Recovered/Not Resolved]
  - Hospitalisation [Unknown]
  - Cardiac disorder [Unknown]
  - Hypertension [Unknown]
  - Heart rate increased [Unknown]
  - Hypersensitivity [Unknown]
  - Bronchospasm [Unknown]
  - Unevaluable event [Not Recovered/Not Resolved]
  - Dysphonia [Unknown]
  - Cough [Recovered/Resolved]
  - Dyspnoea [Recovered/Resolved]
  - Dyspnoea [Not Recovered/Not Resolved]
  - Product dose omission issue [Unknown]

NARRATIVE: CASE EVENT DATE: 20241101
